FAERS Safety Report 18021770 (Version 1)
Quarter: 2020Q3

REPORT INFORMATION
  Report Type: Spontaneous
  Country: CN (occurrence: CN)
  Receive Date: 20200714
  Receipt Date: 20200714
  Transmission Date: 20201103
  Serious: Yes (Other)
  Sender: FDA-Public Use
  Company Number: CN-JNJFOC-20200704300

PATIENT
  Age: 5 Year
  Sex: Male
  Weight: 14 kg

DRUGS (3)
  1. REMICADE [Suspect]
     Active Substance: INFLIXIMAB
     Indication: CROHN^S DISEASE
     Route: 042
     Dates: end: 20200605
  2. WATER FOR INJECTION [Concomitant]
     Active Substance: WATER
     Route: 042
     Dates: start: 20200605, end: 20200605
  3. SODIUM CHLORIDE. [Concomitant]
     Active Substance: SODIUM CHLORIDE
     Route: 042
     Dates: start: 20200605, end: 20200605

REACTIONS (5)
  - Off label use [Unknown]
  - Infusion related reaction [Recovering/Resolving]
  - Anal abscess [Unknown]
  - Product use issue [Unknown]
  - Anaphylactic shock [Recovering/Resolving]

NARRATIVE: CASE EVENT DATE: 20200605
